FAERS Safety Report 7241601-5 (Version None)
Quarter: 2011Q1

REPORT INFORMATION
  Report Type: 
  Country: None (occurrence: None)
  Receive Date: 20110124
  Receipt Date: 20110113
  Transmission Date: 20110831
  Serious: Yes (Other)
  Sender: FDA-Public Use
  Company Number: DE-ASTRAZENECA-2011SE02800

PATIENT
  Sex: Female

DRUGS (2)
  1. FASLODEX [Suspect]
     Dosage: 500 MG
     Route: 030
  2. FASLODEX [Suspect]
     Dosage: 250 MG
     Route: 030
     Dates: end: 20101201

REACTIONS (1)
  - CEREBROVASCULAR ACCIDENT [None]
